FAERS Safety Report 10509951 (Version 2)
Quarter: 2017Q2

REPORT INFORMATION
  Report Type: Spontaneous
  Country: CA (occurrence: CA)
  Receive Date: 20141010
  Receipt Date: 20170405
  Transmission Date: 20170829
  Serious: Yes (Other)
  Sender: FDA-Public Use
  Company Number: CA-JNJFOC-20141004532

PATIENT
  Sex: Male

DRUGS (7)
  1. AXERT [Suspect]
     Active Substance: ALMOTRIPTAN MALATE
     Indication: MIGRAINE
     Route: 048
  2. AMOXICILLIN TRIHYDRATE [Concomitant]
     Active Substance: AMOXICILLIN
     Indication: PRODUCT USED FOR UNKNOWN INDICATION
     Route: 065
  3. APO PREDNISONE [Concomitant]
     Indication: PRODUCT USED FOR UNKNOWN INDICATION
     Route: 065
  4. AXERT [Suspect]
     Active Substance: ALMOTRIPTAN MALATE
     Indication: HEADACHE
     Route: 048
  5. AXERT [Suspect]
     Active Substance: ALMOTRIPTAN MALATE
     Indication: MIGRAINE
     Dosage: 12.5 MG, THREE TO FIVE TABLETS A DAY
     Route: 048
  6. AXERT [Suspect]
     Active Substance: ALMOTRIPTAN MALATE
     Indication: HEADACHE
     Dosage: 12.5 MG, THREE TO FIVE TABLETS A DAY
     Route: 048
  7. PROPANOLOL HYDROCHLORIDE [Concomitant]
     Active Substance: PROPRANOLOL HYDROCHLORIDE
     Indication: PRODUCT USED FOR UNKNOWN INDICATION
     Route: 065

REACTIONS (5)
  - Drug ineffective [Unknown]
  - Off label use [Unknown]
  - Overdose [Unknown]
  - Suicidal ideation [Unknown]
  - Headache [Unknown]

NARRATIVE: CASE EVENT DATE: 20130128
